FAERS Safety Report 16988195 (Version 1)
Quarter: 2019Q4

REPORT INFORMATION
  Report Type: Spontaneous
  Country: IT (occurrence: IT)
  Receive Date: 20191104
  Receipt Date: 20191104
  Transmission Date: 20200122
  Serious: No
  Sender: FDA-Public Use
  Company Number: IT-BEH-2019108779

PATIENT
  Age: 27 Year
  Sex: Female

DRUGS (4)
  1. PANTOPRAZOLE [Concomitant]
     Active Substance: PANTOPRAZOLE
     Route: 048
  2. DELTACORTENE [Concomitant]
     Active Substance: PREDNISONE
     Route: 048
  3. PRIVIGEN [Suspect]
     Active Substance: HUMAN IMMUNOGLOBULIN G
     Indication: IMMUNODEFICIENCY COMMON VARIABLE
     Dosage: 15 GRAM, TOT
     Route: 042
     Dates: start: 20190910, end: 20190910
  4. NATECAL D3 [Concomitant]
     Active Substance: CALCIUM CARBONATE\CHOLECALCIFEROL
     Dosage: 1 DOSAGE FORM
     Route: 048

REACTIONS (7)
  - Urticaria [Recovered/Resolved]
  - Rash pruritic [Recovered/Resolved]
  - Rash [Recovered/Resolved]
  - Pain [Unknown]
  - Abdominal pain [Recovered/Resolved]
  - Infusion site rash [Recovered/Resolved]
  - Pyrexia [Recovered/Resolved]

NARRATIVE: CASE EVENT DATE: 20190910
